FAERS Safety Report 7314961-4 (Version None)
Quarter: 2011Q1

REPORT INFORMATION
  Report Type: 
  Country: None (occurrence: None)
  Receive Date: 20110225
  Receipt Date: 20100311
  Transmission Date: 20110831
  Serious: No
  Sender: FDA-Public Use
  Company Number: US-MYLANLABS-2010S1002820

PATIENT
  Age: 12 Year
  Sex: Female
  Weight: 54.43 kg

DRUGS (4)
  1. AMNESTEEM [Suspect]
     Indication: ACNE
     Route: 048
     Dates: start: 20100120, end: 20100219
  2. ADVIL [Concomitant]
  3. MULTI-VITAMIN [Concomitant]
     Dosage: CONTAINING 300 IU OF VITAMIN A
     Route: 048
     Dates: end: 20100201
  4. CONTRACEPTIVE [Concomitant]
     Indication: CONTRACEPTION

REACTIONS (1)
  - PURPURA [None]
